FAERS Safety Report 22380383 (Version 1)
Quarter: 2023Q2

REPORT INFORMATION
  Report Type: Spontaneous
  Country: GB (occurrence: GB)
  Receive Date: 20230529
  Receipt Date: 20230529
  Transmission Date: 20230722
  Serious: Yes (Hospitalization, Other)
  Sender: FDA-Public Use
  Company Number: GB-LDELTA-NLLD0041167

PATIENT
  Age: 22 Year
  Sex: Female

DRUGS (5)
  1. ACETAMINOPHEN [Suspect]
     Active Substance: ACETAMINOPHEN
     Indication: Product used for unknown indication
     Dosage: UNSPECIFIED OVERDOSE; ;
     Route: 065
     Dates: start: 20230509, end: 20230509
  2. CLOZAPINE [Suspect]
     Active Substance: CLOZAPINE
     Indication: Product used for unknown indication
     Route: 050
     Dates: start: 20230518
  3. CLOZAPINE [Suspect]
     Active Substance: CLOZAPINE
     Route: 050
     Dates: start: 20230511
  4. CLOZAPINE [Suspect]
     Active Substance: CLOZAPINE
     Route: 050
     Dates: start: 20140423, end: 20230509
  5. CLOZAPINE [Suspect]
     Active Substance: CLOZAPINE
     Dosage: OVERDOSE - 42 TABLETS OF 100MG
     Route: 050
     Dates: start: 20230509, end: 20230509

REACTIONS (2)
  - Tachycardia [Not Recovered/Not Resolved]
  - Overdose [Not Recovered/Not Resolved]

NARRATIVE: CASE EVENT DATE: 20230509
